FAERS Safety Report 7383747-7 (Version None)
Quarter: 2011Q1

REPORT INFORMATION
  Report Type: 
  Country: None (occurrence: None)
  Receive Date: 20110330
  Receipt Date: 20110322
  Transmission Date: 20110831
  Serious: Yes (Other)
  Sender: FDA-Public Use
  Company Number: CA-ROCHE-767362

PATIENT
  Sex: Female

DRUGS (7)
  1. HYDROCHLOROTHIAZIDE [Concomitant]
  2. TOCILIZUMAB [Suspect]
     Dosage: FORM: INFUSION
     Route: 042
     Dates: start: 20110322, end: 20110322
  3. METFORMIN [Concomitant]
  4. LORAZEPAM [Concomitant]
  5. DIOVAN [Concomitant]
  6. PLAQUENIL [Concomitant]
  7. CYCLOSPORINE [Concomitant]

REACTIONS (2)
  - HYPERSENSITIVITY [None]
  - ANGINA PECTORIS [None]
